FAERS Safety Report 18212325 (Version 1)
Quarter: 2020Q3

REPORT INFORMATION
  Report Type: Other
  Country: PK (occurrence: PK)
  Receive Date: 20200831
  Receipt Date: 20200831
  Transmission Date: 20201103
  Serious: Yes (Death)
  Sender: FDA-Public Use
  Company Number: PK-KNIGHT THERAPEUTICS (USA) INC.-2089197

PATIENT
  Age: 44 Year
  Sex: Male

DRUGS (11)
  1. DESMOPRESSIN ACETATE. [Concomitant]
     Active Substance: DESMOPRESSIN ACETATE
     Route: 048
     Dates: start: 2019, end: 2019
  2. IMPAVIDO [Suspect]
     Active Substance: MILTEFOSINE
     Indication: NAEGLERIA INFECTION
     Route: 048
     Dates: start: 2019, end: 2019
  3. RIFAMPIN. [Concomitant]
     Active Substance: RIFAMPIN
     Route: 042
     Dates: start: 2019, end: 2019
  4. PROPOFOL. [Concomitant]
     Active Substance: PROPOFOL
     Route: 042
     Dates: start: 2019, end: 2019
  5. AMPHOTERICIN B. [Concomitant]
     Active Substance: AMPHOTERICIN B
     Route: 037
     Dates: start: 2019, end: 2019
  6. LACTATED RINGERS SOLUTION [Concomitant]
     Active Substance: CALCIUM CHLORIDE\POTASSIUM CHLORIDE\SODIUM CHLORIDE\SODIUM LACTATE
     Route: 042
     Dates: start: 2019, end: 2019
  7. FLUCONAZOLE. [Concomitant]
     Active Substance: FLUCONAZOLE
     Route: 042
     Dates: start: 2019, end: 2019
  8. DEXAMETHASONE. [Concomitant]
     Active Substance: DEXAMETHASONE
     Route: 042
     Dates: start: 2019, end: 2019
  9. LEVETIRACETAM. [Concomitant]
     Active Substance: LEVETIRACETAM
     Route: 042
     Dates: start: 2019, end: 2019
  10. MANNITOL. [Concomitant]
     Active Substance: MANNITOL
     Route: 065
     Dates: start: 2019, end: 2019
  11. MIDAZOLAM. [Concomitant]
     Active Substance: MIDAZOLAM
     Route: 042
     Dates: start: 2019, end: 2019

REACTIONS (2)
  - Off label use [Fatal]
  - Drug ineffective for unapproved indication [Fatal]
